FAERS Safety Report 6192914-X (Version None)
Quarter: 2009Q2

REPORT INFORMATION
  Report Type: 
  Country: None (occurrence: None)
  Receive Date: 20090518
  Receipt Date: 20090508
  Transmission Date: 20091009
  Serious: Yes (Other)
  Sender: FDA-Public Use
  Company Number: HQWYE451327JUL04

PATIENT
  Sex: Female

DRUGS (8)
  1. PREMPRO [Suspect]
  2. PREMARIN [Suspect]
  3. PREFEST [Suspect]
  4. MEDROXYPROGESTERONE ACETATE [Suspect]
  5. PROVERA [Suspect]
  6. MENEST [Suspect]
  7. CYCRIN [Suspect]
  8. ESTRATAB [Suspect]

REACTIONS (1)
  - BREAST CANCER METASTATIC [None]
